FAERS Safety Report 5052950-3 (Version None)
Quarter: 2006Q3

REPORT INFORMATION
  Report Type: 
  Country: None (occurrence: None)
  Receive Date: 20060712
  Receipt Date: 20060628
  Transmission Date: 20061208
  Serious: Yes (Other)
  Sender: FDA-Public Use
  Company Number: 2006081707

PATIENT
  Age: 50 Year
  Sex: Male

DRUGS (5)
  1. NEURONTIN [Suspect]
     Dosage: 1200 MG (400 MG, 3 IN 1 D)
  2. LORAZEPAM [Concomitant]
  3. ZOCOR [Concomitant]
  4. LEVITRA [Concomitant]
  5. METFORMIN [Concomitant]

REACTIONS (1)
  - DRUG ABUSER [None]
